FAERS Safety Report 7905969-6 (Version None)
Quarter: 2011Q4

REPORT INFORMATION
  Report Type: 
  Country: None (occurrence: None)
  Receive Date: 20111108
  Receipt Date: 20111026
  Transmission Date: 20120403
  Serious: Yes (Hospitalization)
  Sender: FDA-Public Use
  Company Number: USA/USA/11/0021804

PATIENT
  Age: 9 Year
  Sex: Female
  Weight: 17.2 kg

DRUGS (8)
  1. ATORVASTATIN [Concomitant]
  2. AMLODIPINE BESYLATE [Suspect]
     Indication: HYPERTENSION
     Dosage: 12.5 MG, 7.5 MG IN AM, 5 MG IN PM (12.5 MG/DAY), ORAL; 15 MG, 1 IN 1 D, ORAL; 7.5 MG, 1 IN 1 D, ORAL
  3. AMLODIPINE BESYLATE [Suspect]
     Indication: HYPERTENSION
     Dosage: 12.5 MG, 7.5 MG IN AM, 5 MG IN PM (12.5 MG/DAY), ORAL; 15 MG, 1 IN 1 D, ORAL; 7.5 MG, 1 IN 1 D, ORAL
  4. AZATHIOPRINE [Suspect]
     Indication: PRODUCT USED FOR UNKNOWN INDICATION
     Dosage: 50 MG, 1 D
  5. CALCITRIOL [Concomitant]
  6. EPOGEN [Suspect]
     Indication: PRODUCT USED FOR UNKNOWN INDICATION
     Dosage: 10000IU, EVERY SUNDAY
  7. LABETALOL HCL [Concomitant]
  8. BUDESONIDE [Suspect]
     Indication: PRODUCT USED FOR UNKNOWN INDICATION
     Dosage: 3 MG, 1 D;

REACTIONS (13)
  - BLOOD CHLORIDE INCREASED [None]
  - GINGIVAL HYPERPLASIA [None]
  - WEIGHT GAIN POOR [None]
  - REFUSAL OF TREATMENT BY RELATIVE [None]
  - GINGIVAL BLEEDING [None]
  - FAILURE TO THRIVE [None]
  - PROTEIN TOTAL DECREASED [None]
  - BLOOD PRESSURE INADEQUATELY CONTROLLED [None]
  - BLOOD BICARBONATE DECREASED [None]
  - BLOOD PARATHYROID HORMONE DECREASED [None]
  - TREATMENT NONCOMPLIANCE [None]
  - HYPOKALAEMIA [None]
  - DRUG INTERACTION [None]
